FAERS Safety Report 17589333 (Version 2)
Quarter: 2021Q2

REPORT INFORMATION
  Report Type: Spontaneous
  Country: US (occurrence: US)
  Receive Date: 20200327
  Receipt Date: 20210413
  Transmission Date: 20210716
  Serious: No
  Sender: FDA-Public Use
  Company Number: US-ALLERGAN-1933399US

PATIENT
  Sex: Female

DRUGS (2)
  1. LUMIGAN [Suspect]
     Active Substance: BIMATOPROST
     Dosage: 2 GTT, QHS
     Route: 047
  2. LUMIGAN [Suspect]
     Active Substance: BIMATOPROST
     Indication: GLAUCOMA
     Dosage: 2 GTT, QHS
     Route: 047

REACTIONS (15)
  - Ocular hyperaemia [Recovered/Resolved]
  - Feeling abnormal [Recovered/Resolved]
  - Eyelid pain [Recovered/Resolved]
  - Eye pain [Recovered/Resolved]
  - Headache [Recovered/Resolved]
  - Eye colour change [Recovered/Resolved]
  - Lacrimation increased [Recovered/Resolved]
  - Dry eye [Recovered/Resolved]
  - Eye pruritus [Recovered/Resolved]
  - Growth of eyelashes [Unknown]
  - Eyelash changes [Recovered/Resolved]
  - Eye irritation [Recovered/Resolved]
  - Product formulation issue [Unknown]
  - Eye discharge [Recovered/Resolved]
  - Photophobia [Recovered/Resolved]

NARRATIVE: CASE EVENT DATE: 201905
